FAERS Safety Report 7528440-2 (Version None)
Quarter: 2011Q2

REPORT INFORMATION
  Report Type: 
  Country: None (occurrence: None)
  Receive Date: 20110607
  Receipt Date: 20110121
  Transmission Date: 20111010
  Serious: No
  Sender: FDA-Public Use
  Company Number: US-ASTRAZENECA-2011SE06231

PATIENT
  Sex: Male

DRUGS (2)
  1. ANTIHYPERTENSIVES [Concomitant]
  2. PRILOSEC OTC [Suspect]
     Indication: VERTIGO
     Route: 048
     Dates: start: 20110106, end: 20110118

REACTIONS (2)
  - THROAT IRRITATION [None]
  - GASTROOESOPHAGEAL REFLUX DISEASE [None]
